FAERS Safety Report 8948218 (Version 1)
Quarter: 2012Q4

REPORT INFORMATION
  Report Type: Spontaneous
  Country: US (occurrence: None)
  Receive Date: 20121203
  Receipt Date: 20121203
  Transmission Date: 20130627
  Serious: No
  Sender: FDA-Public Use
  Company Number: None

PATIENT
  Age: 51 Year
  Sex: Male

DRUGS (3)
  1. QUITIAPINE 300 MG UNKNOWN [Suspect]
     Indication: BIPOLAR DISORDER
     Dosage: Generic formulation filled 4-22-12, 5-20-12, + 6-17-12
     Route: 048
     Dates: start: 20120422
  2. QUITIAPINE 300 MG UNKNOWN [Suspect]
     Indication: BIPOLAR DISORDER
     Dates: start: 20120520
  3. QUITIAPINE 300 MG UNKNOWN [Suspect]
     Indication: BIPOLAR DISORDER
     Dates: start: 20120617

REACTIONS (1)
  - Drug effect decreased [None]
